FAERS Safety Report 7316095-1 (Version None)
Quarter: 2011Q1

REPORT INFORMATION
  Report Type: 
  Country: None (occurrence: None)
  Receive Date: 20110225
  Receipt Date: 20110215
  Transmission Date: 20110831
  Serious: Yes (Other)
  Sender: FDA-Public Use
  Company Number: US-ELI_LILLY_AND_COMPANY-US201102005103

PATIENT
  Sex: Female

DRUGS (1)
  1. FORTEO [Suspect]
     Indication: OSTEOPOROSIS
     Dosage: 20 UG, DAILY (1/D)
     Route: 065
     Dates: start: 20101001

REACTIONS (9)
  - BLINDNESS UNILATERAL [None]
  - CATARACT [None]
  - MALAISE [None]
  - MOVEMENT DISORDER [None]
  - INSOMNIA [None]
  - FEAR OF FALLING [None]
  - DIARRHOEA [None]
  - VOMITING [None]
  - CONSTIPATION [None]
